FAERS Safety Report 9503226 (Version 2)
Quarter: 2013Q4

REPORT INFORMATION
  Report Type: Spontaneous
  Country: JP (occurrence: JP)
  Receive Date: 20130906
  Receipt Date: 20131031
  Transmission Date: 20140711
  Serious: Yes (Other)
  Sender: FDA-Public Use
  Company Number: JP-NOVOPROD-386577

PATIENT
  Age: 75 Year
  Sex: Male
  Weight: 65 kg

DRUGS (1)
  1. VICTOZA HIKACHU INJECTION [Suspect]
     Indication: TYPE 2 DIABETES MELLITUS
     Dosage: UNK
     Route: 058
     Dates: start: 20110512, end: 20111012

REACTIONS (2)
  - Autoimmune pancreatitis [Not Recovered/Not Resolved]
  - Diabetes mellitus inadequate control [Unknown]
